FAERS Safety Report 14177003 (Version 1)
Quarter: 2017Q4

REPORT INFORMATION
  Report Type: Spontaneous
  Country: FR (occurrence: FR)
  Receive Date: 20171110
  Receipt Date: 20171110
  Transmission Date: 20180321
  Serious: Yes (Other)
  Sender: FDA-Public Use
  Company Number: FR-MERCK KGAA-2033787

PATIENT
  Age: 73 Year
  Sex: Female

DRUGS (2)
  1. LEVOTHYROX [Suspect]
     Active Substance: LEVOTHYROXINE
  2. NOVOTHYROX [Suspect]
     Active Substance: LEVOTHYROXINE SODIUM
     Indication: PRODUCT USED FOR UNKNOWN INDICATION
     Dates: start: 2000

REACTIONS (9)
  - Dyspnoea [None]
  - Respiratory disorder [None]
  - Eye swelling [None]
  - Muscle spasms [Recovering/Resolving]
  - Pruritus [Not Recovered/Not Resolved]
  - Urticaria [Not Recovered/Not Resolved]
  - Oropharyngeal discomfort [None]
  - Speech disorder [None]
  - Pharyngeal oedema [Not Recovered/Not Resolved]
